FAERS Safety Report 14976907 (Version 1)
Quarter: 2018Q2

REPORT INFORMATION
  Report Type: Spontaneous
  Country: FR (occurrence: FR)
  Receive Date: 20180605
  Receipt Date: 20180605
  Transmission Date: 20180711
  Serious: Yes (Other)
  Sender: FDA-Public Use
  Company Number: FR-ASTRAZENECA-2018SE71411

PATIENT
  Age: 58 Year
  Sex: Male
  Weight: 78 kg

DRUGS (8)
  1. BRILIQUE [Suspect]
     Active Substance: TICAGRELOR
     Indication: MYOCARDIAL INFARCTION
     Dosage: 90.0MG UNKNOWN
     Route: 048
     Dates: start: 20171128, end: 20171226
  2. PANTOPRAZOLE [Suspect]
     Active Substance: PANTOPRAZOLE
     Indication: MYOCARDIAL INFARCTION
     Route: 048
     Dates: start: 20171128, end: 20171226
  3. KARDEGIC [Suspect]
     Active Substance: ASPIRIN DL-LYSINE
     Indication: MYOCARDIAL INFARCTION
     Route: 048
  4. RAMIPRIL. [Suspect]
     Active Substance: RAMIPRIL
     Indication: MYOCARDIAL INFARCTION
     Dosage: 5.0MG UNKNOWN
     Route: 048
  5. PANTOPRAZOLE [Suspect]
     Active Substance: PANTOPRAZOLE
     Indication: MYOCARDIAL INFARCTION
     Route: 048
  6. RAMIPRIL. [Suspect]
     Active Substance: RAMIPRIL
     Indication: MYOCARDIAL INFARCTION
     Dosage: 5.0MG UNKNOWN
     Route: 048
     Dates: start: 20171128, end: 20171226
  7. ATORVASTATIN [Suspect]
     Active Substance: ATORVASTATIN
     Indication: MYOCARDIAL INFARCTION
     Route: 048
     Dates: start: 20171128, end: 20171226
  8. KARDEGIC [Suspect]
     Active Substance: ASPIRIN DL-LYSINE
     Indication: MYOCARDIAL INFARCTION
     Route: 048
     Dates: start: 20171128, end: 20171226

REACTIONS (1)
  - Hepatitis cholestatic [Recovered/Resolved]

NARRATIVE: CASE EVENT DATE: 20171221
